FAERS Safety Report 5194426-9 (Version None)
Quarter: 2006Q4

REPORT INFORMATION
  Report Type: 
  Country: None (occurrence: None)
  Receive Date: 20061221
  Receipt Date: 20061211
  Transmission Date: 20070319
  Serious: Yes (Death)
  Sender: FDA-Public Use
  Company Number: HQWYE730121DEC06

PATIENT

DRUGS (1)
  1. ZOSYN [Suspect]

REACTIONS (1)
  - HAEMOLYTIC ANAEMIA [None]
